FAERS Safety Report 23396424 (Version 1)
Quarter: 2024Q1

REPORT INFORMATION
  Report Type: Spontaneous
  Country: GB (occurrence: None)
  Receive Date: 20240112
  Receipt Date: 20240112
  Transmission Date: 20240409
  Serious: Yes (Hospitalization)
  Sender: FDA-Public Use
  Company Number: GB-ROCHE-3489122

PATIENT
  Sex: Male
  Weight: 2.35 kg

DRUGS (1)
  1. PHESGO [Suspect]
     Active Substance: HYALURONIDASE-ZZXF\PERTUZUMAB\TRASTUZUMAB
     Indication: Product used for unknown indication
     Dosage: 600/600
     Route: 064
     Dates: start: 20210628, end: 20230403

REACTIONS (3)
  - Foetal exposure during pregnancy [Unknown]
  - Infection [Unknown]
  - Investigation abnormal [Unknown]
